FAERS Safety Report 24432138 (Version 1)
Quarter: 2024Q4

REPORT INFORMATION
  Report Type: Spontaneous
  Country: NL (occurrence: NL)
  Receive Date: 20241014
  Receipt Date: 20241014
  Transmission Date: 20250115
  Serious: Yes (Life-Threatening, Hospitalization)
  Sender: BOEHRINGER INGELHEIM
  Company Number: None

PATIENT
  Age: 71 Year
  Sex: Female
  Weight: 68 kg

DRUGS (5)
  1. JARDIANCE [Suspect]
     Active Substance: EMPAGLIFLOZIN
     Indication: Type 2 diabetes mellitus
     Dates: start: 20231101, end: 20240801
  2. BUDESONIDE/FORMOTEROL INHP  100/6UG/DO / SYMBICORT TURBUHALER INHALPDR [Concomitant]
     Indication: Product used for unknown indication
  3. HYDROCHLOORTHIAZIDE TABLET  6,25MG / Brand name not specified [Concomitant]
     Indication: Product used for unknown indication
  4. METFORMINE TABLET   250MG / Brand name not specified [Concomitant]
     Indication: Product used for unknown indication
  5. PRAVASTATINE TABLET 10MG / Brand name not specified [Concomitant]
     Indication: Product used for unknown indication

REACTIONS (3)
  - Urosepsis [Recovered/Resolved]
  - Urosepsis [Recovered/Resolved]
  - Urosepsis [Recovered/Resolved]
